FAERS Safety Report 14008025 (Version 1)
Quarter: 2017Q3

REPORT INFORMATION
  Report Type: Spontaneous
  Country: JP (occurrence: JP)
  Receive Date: 20170925
  Receipt Date: 20170925
  Transmission Date: 20171128
  Serious: Yes (Hospitalization)
  Sender: FDA-Public Use
  Company Number: JP-JNJFOC-20170908213

PATIENT
  Age: 5 Decade
  Sex: Female

DRUGS (1)
  1. TRAMCET [Suspect]
     Active Substance: ACETAMINOPHEN\TRAMADOL
     Indication: PAIN
     Route: 048

REACTIONS (2)
  - Hospitalisation [Unknown]
  - Hypogeusia [Recovered/Resolved]

NARRATIVE: CASE EVENT DATE: 201708
